FAERS Safety Report 4423240-4 (Version None)
Quarter: 2004Q3

REPORT INFORMATION
  Report Type: 
  Country: None (occurrence: None)
  Receive Date: 20040805
  Receipt Date: 20040727
  Transmission Date: 20050211
  Serious: Yes (Other)
  Sender: FDA-Public Use
  Company Number: NSADSS2002012304

PATIENT
  Age: 10 Year
  Sex: Male
  Weight: 32.9765 kg

DRUGS (10)
  1. CISAPRIDE (CISAPRIDE) SUSPENSION [Suspect]
     Indication: IMPAIRED GASTRIC EMPTYING
     Dosage: SEE IMAGE
     Route: 048
     Dates: start: 20001124, end: 20020404
  2. ATIVAN [Concomitant]
  3. FLONASE [Concomitant]
  4. CARNITINE (CARNITINE) [Concomitant]
  5. VITAMINE C (ASCORBIC ACID) [Concomitant]
  6. MULTIVITAMIN [Concomitant]
  7. TRACE ELEMENTS (TRACE ELEMENTS) [Concomitant]
  8. ROCEPHIN [Concomitant]
  9. GLYCERYL (GLYCEROL) [Concomitant]
  10. HEPARIN [Concomitant]

REACTIONS (3)
  - BUNDLE BRANCH BLOCK RIGHT [None]
  - ELECTROCARDIOGRAM QT CORRECTED INTERVAL PROLONGED [None]
  - ELECTROCARDIOGRAM T WAVE INVERSION [None]
